FAERS Safety Report 7998166-X (Version None)
Quarter: 2011Q4

REPORT INFORMATION
  Report Type: 
  Country: None (occurrence: None)
  Receive Date: 20111221
  Receipt Date: 20110318
  Transmission Date: 20120403
  Serious: No
  Sender: FDA-Public Use
  Company Number: US-GLAXOSMITHKLINE-A0918953A

PATIENT
  Age: 48 Year
  Sex: Male

DRUGS (6)
  1. LISINOPRIL [Concomitant]
  2. NIACIN [Concomitant]
  3. SIMVASTATIN [Concomitant]
  4. LOVAZA [Suspect]
     Indication: CARDIAC DISORDER
     Dosage: 2G PER DAY
     Route: 048
     Dates: start: 20100101
  5. METOPROLOL TARTRATE [Concomitant]
  6. HYDROCHLOROTHIAZIDE [Concomitant]

REACTIONS (4)
  - ABDOMINAL DISCOMFORT [None]
  - FATIGUE [None]
  - DIZZINESS [None]
  - INFLUENZA LIKE ILLNESS [None]
